FAERS Safety Report 7558412-3 (Version None)
Quarter: 2011Q2

REPORT INFORMATION
  Report Type: 
  Country: None (occurrence: None)
  Receive Date: 20110620
  Receipt Date: 20110614
  Transmission Date: 20111010
  Serious: Yes (Death, Other)
  Sender: FDA-Public Use
  Company Number: PHHY2011US52181

PATIENT
  Age: 80 Year
  Sex: Female
  Weight: 100 kg

DRUGS (16)
  1. NPLATE [Suspect]
     Dosage: 200 UG, UNK
     Dates: start: 20091209
  2. COZAAR [Concomitant]
  3. SOL MEDROL [Concomitant]
  4. NPLATE [Suspect]
     Dosage: 200 UG, UNK
     Dates: start: 20100106
  5. METHYLPREDNISOLONE [Concomitant]
  6. NPLATE [Suspect]
     Indication: IDIOPATHIC THROMBOCYTOPENIC PURPURA
     Dosage: 100 UG, UNK
     Route: 058
     Dates: start: 20091204
  7. NPLATE [Suspect]
     Dosage: 200 UG, UNK
     Dates: start: 20091230
  8. COMBIVENT [Concomitant]
  9. ERGOCALCIFEROL [Concomitant]
  10. CALCIUM CARBONATE [Concomitant]
  11. NPLATE [Suspect]
     Dosage: 200 UG, UNK
     Dates: start: 20091224
  12. GLYBURIDE [Concomitant]
  13. FEMARA [Suspect]
     Dosage: 2.5 MG, UNK
     Route: 065
     Dates: start: 20070123, end: 20100112
  14. NPLATE [Suspect]
     Dosage: 200 UG, UNK
     Dates: start: 20091218
  15. ASPIRIN [Concomitant]
  16. ZANTAC [Concomitant]

REACTIONS (6)
  - OEDEMA PERIPHERAL [None]
  - THROMBOCYTOSIS [None]
  - PULMONARY EMBOLISM [None]
  - HYPOXIA [None]
  - DEEP VEIN THROMBOSIS [None]
  - DEATH [None]
